FAERS Safety Report 9331800 (Version 1)
Quarter: 2013Q2

REPORT INFORMATION
  Report Type: Spontaneous
  Country: US (occurrence: US)
  Receive Date: 20130605
  Receipt Date: 20130605
  Transmission Date: 20140414
  Serious: Yes (Hospitalization)
  Sender: FDA-Public Use
  Company Number: US-TEVA-409190USA

PATIENT
  Age: 33 Year
  Sex: Female
  Weight: 77.18 kg

DRUGS (6)
  1. NUVIGIL [Suspect]
     Indication: ATTENTION DEFICIT/HYPERACTIVITY DISORDER
     Dosage: 150 MILLIGRAM DAILY;
     Dates: start: 2012, end: 201209
  2. NUVIGIL [Suspect]
     Indication: CIRCADIAN RHYTHM SLEEP DISORDER
  3. PROTONIX [Concomitant]
     Indication: GASTROINTESTINAL DISORDER
     Dosage: 40 MILLIGRAM DAILY;
     Dates: start: 201206
  4. SYNTHROID [Concomitant]
     Indication: HYPOTHYROIDISM
     Dosage: 50 MICROGRAM DAILY;
     Dates: start: 2009
  5. SEROQUEL [Concomitant]
     Indication: BIPOLAR DISORDER
     Dosage: 100 MILLIGRAM DAILY; AT BEDTIME AS NEEDED
     Dates: start: 2011
  6. PRENATAL VITAMINS [Concomitant]
     Indication: PREGNANCY
     Dosage: 1 TABLET DAILY;
     Dates: start: 201209, end: 201304

REACTIONS (4)
  - Vaginal haemorrhage [Recovered/Resolved]
  - Live birth [Unknown]
  - Therapeutic response unexpected [Unknown]
  - Off label use [Unknown]
